FAERS Safety Report 9171004 (Version 1)
Quarter: 2013Q1

REPORT INFORMATION
  Report Type: Spontaneous
  Country: US (occurrence: US)
  Receive Date: 20130319
  Receipt Date: 20130319
  Transmission Date: 20140127
  Serious: No
  Sender: FDA-Public Use
  Company Number: US-VERTEX PHARMACEUTICALS INC.-2013-003685

PATIENT
  Age: 55 Year
  Sex: Male

DRUGS (4)
  1. INCIVEK [Suspect]
     Indication: HEPATITIS C
     Dosage: 750 MG, TID
  2. RIBAVIRIN [Suspect]
     Indication: HEPATITIS C
     Dosage: UNK
  3. PEGASYS [Suspect]
     Indication: HEPATITIS C
     Dosage: UNK
  4. NORVASC [Concomitant]

REACTIONS (2)
  - Chills [Recovered/Resolved]
  - Pruritus [Recovered/Resolved]
